FAERS Safety Report 12662275 (Version 1)
Quarter: 2016Q3

REPORT INFORMATION
  Report Type: Report from Study
  Country: BR (occurrence: BR)
  Receive Date: 20160817
  Receipt Date: 20160817
  Transmission Date: 20161109
  Serious: Yes (Other)
  Sender: FDA-Public Use
  Company Number: BR-ABBVIE-16K-020-1534025-00

PATIENT
  Age: 73 Year
  Sex: Male
  Weight: 82 kg

DRUGS (5)
  1. SEROQUEL [Suspect]
     Active Substance: QUETIAPINE FUMARATE
     Indication: ABNORMAL BEHAVIOUR
     Route: 048
     Dates: start: 201510
  2. ALLOPURINOL. [Concomitant]
     Active Substance: ALLOPURINOL
     Indication: BLOOD URIC ACID
     Route: 048
     Dates: start: 1990, end: 201512
  3. HUMIRA [Suspect]
     Active Substance: ADALIMUMAB
     Indication: PSORIATIC ARTHROPATHY
     Route: 058
     Dates: start: 20130705
  4. ATENOLOL. [Concomitant]
     Active Substance: ATENOLOL
     Indication: HYPERTENSION
     Route: 048
     Dates: start: 1985
  5. RUSOVAS [Concomitant]
     Active Substance: ROSUVASTATIN
     Indication: BLOOD CHOLESTEROL ABNORMAL
     Route: 048
     Dates: start: 1985, end: 201512

REACTIONS (13)
  - Weight increased [Recovered/Resolved]
  - Inflammation [Recovering/Resolving]
  - Blood test abnormal [Unknown]
  - Hepatic steatosis [Not Recovered/Not Resolved]
  - Burning sensation [Recovering/Resolving]
  - Erythema [Recovering/Resolving]
  - Dementia Alzheimer^s type [Not Recovered/Not Resolved]
  - Weight decreased [Recovered/Resolved]
  - Somnolence [Recovering/Resolving]
  - Abnormal behaviour [Unknown]
  - Dementia Alzheimer^s type [Not Recovered/Not Resolved]
  - Pruritus [Recovering/Resolving]
  - Pruritus [Unknown]

NARRATIVE: CASE EVENT DATE: 201309
